FAERS Safety Report 7798888-X (Version None)
Quarter: 2011Q4

REPORT INFORMATION
  Report Type: 
  Country: None (occurrence: None)
  Receive Date: 20111006
  Receipt Date: 20110927
  Transmission Date: 20120403
  Serious: Yes (Other)
  Sender: FDA-Public Use
  Company Number: US-JNJFOC-20110911441

PATIENT
  Sex: Female
  Weight: 60.78 kg

DRUGS (6)
  1. INDOMETHACIN [Concomitant]
     Indication: INFLAMMATION
     Route: 048
  2. PREDNISONE [Concomitant]
     Indication: INFLAMMATION
     Route: 048
  3. OTHER THERAPEUTIC PRODUCTS [Concomitant]
     Route: 065
  4. REMICADE [Suspect]
     Indication: RHEUMATOID ARTHRITIS
     Route: 042
     Dates: end: 20110401
  5. NORCO [Concomitant]
     Indication: PAIN
     Dosage: AS NECESSARY
     Route: 048
  6. VICODIN [Concomitant]
     Indication: PAIN
     Dosage: AS NECESSARY
     Route: 048

REACTIONS (1)
  - VIITH NERVE PARALYSIS [None]
